FAERS Safety Report 14768132 (Version 1)
Quarter: 2018Q2

REPORT INFORMATION
  Report Type: Spontaneous
  Country: US (occurrence: US)
  Receive Date: 20180410
  Receipt Date: 20180410
  Transmission Date: 20180711
  Serious: Yes (Other)
  Sender: FDA-Public Use
  Company Number: None

PATIENT
  Age: 69 Year
  Sex: Female
  Weight: 53.52 kg

DRUGS (6)
  1. AMLODIPINE BESYLATE. [Suspect]
     Active Substance: AMLODIPINE BESYLATE
     Indication: HYPERTENSION
     Dosage: ?          QUANTITY:1 DF DOSAGE FORM;?
     Route: 048
     Dates: start: 20160419, end: 20180218
  2. CARVEDILOL. [Concomitant]
     Active Substance: CARVEDILOL
  3. CALCIUM [Concomitant]
     Active Substance: CALCIUM
  4. VITAMIN C [Concomitant]
     Active Substance: ASCORBIC ACID
  5. FISH OIL [Concomitant]
     Active Substance: FISH OIL
  6. CENTRUM SILVER [Concomitant]
     Active Substance: MINERALS\VITAMINS

REACTIONS (4)
  - Skin laxity [None]
  - Blepharochalasis [None]
  - Sleep disorder [None]
  - Malaise [None]

NARRATIVE: CASE EVENT DATE: 201604
